FAERS Safety Report 19219526 (Version 1)
Quarter: 2021Q2

REPORT INFORMATION
  Report Type: Spontaneous
  Country: US (occurrence: US)
  Receive Date: 20210506
  Receipt Date: 20210506
  Transmission Date: 20210717
  Serious: No
  Sender: FDA-Public Use
  Company Number: US-ROCHE-2645905

PATIENT
  Age: 72 Year
  Sex: Female

DRUGS (8)
  1. VERAPAMIL [Concomitant]
     Active Substance: VERAPAMIL HYDROCHLORIDE
  2. METFORMIN [Concomitant]
     Active Substance: METFORMIN HYDROCHLORIDE
  3. ESBRIET [Suspect]
     Active Substance: PIRFENIDONE
     Indication: PULMONARY FIBROSIS
     Dosage: 1 TAB BY MOUTH TID FOR 7 D,THEN 2 TAB TID FOR 7 D, THEN 3 TAB TID.
     Route: 048
     Dates: start: 202006
  4. OMEPRAZOLE. [Concomitant]
     Active Substance: OMEPRAZOLE
  5. CANDESARTAN. [Concomitant]
     Active Substance: CANDESARTAN
  6. MONTELUCAST [Concomitant]
     Active Substance: MONTELUKAST SODIUM
  7. MONTELUCAST [Concomitant]
     Active Substance: MONTELUKAST SODIUM
  8. FLUTICASONE. [Concomitant]
     Active Substance: FLUTICASONE

REACTIONS (1)
  - Rash [Unknown]

NARRATIVE: CASE EVENT DATE: 202006
